FAERS Safety Report 5374887-2 (Version None)
Quarter: 2007Q2

REPORT INFORMATION
  Report Type: 
  Country: None (occurrence: None)
  Receive Date: 20070629
  Receipt Date: 20070625
  Transmission Date: 20071010
  Serious: Yes (Other)
  Sender: FDA-Public Use
  Company Number: GB-MERCK-0605GBR00027

PATIENT
  Age: 57 Year
  Sex: Male

DRUGS (5)
  1. DECADRON [Suspect]
     Indication: ALLOGENIC BONE MARROW TRANSPLANTATION THERAPY
     Route: 065
  2. CYCLOSPORINE [Suspect]
     Indication: ALLOGENIC BONE MARROW TRANSPLANTATION THERAPY
     Route: 065
  3. CYCLOSPORINE [Suspect]
     Route: 065
  4. THALIDOMIDE [Suspect]
     Route: 065
  5. [THERAPY UNSPECIFIED] [Concomitant]
     Route: 065

REACTIONS (18)
  - ABDOMINAL DISCOMFORT [None]
  - ACANTHOSIS [None]
  - BLOOD ALKALINE PHOSPHATASE INCREASED [None]
  - EPIDERMAL NECROSIS [None]
  - ERYTHEMA [None]
  - GRAFT VERSUS HOST DISEASE [None]
  - HYPERKERATOSIS [None]
  - INFLAMMATION [None]
  - LICHEN PLANUS [None]
  - LYMPHOCYTIC INFILTRATION [None]
  - NODULE [None]
  - RASH ERYTHEMATOUS [None]
  - SKIN EXFOLIATION [None]
  - SKIN HYPERPIGMENTATION [None]
  - SKIN LESION [None]
  - SKIN OEDEMA [None]
  - SOMNOLENCE [None]
  - SQUAMOUS CELL CARCINOMA OF SKIN [None]
